FAERS Safety Report 8035508-3 (Version None)
Quarter: 2012Q1

REPORT INFORMATION
  Report Type: 
  Country: None (occurrence: None)
  Receive Date: 20120111
  Receipt Date: 20120105
  Transmission Date: 20120608
  Serious: Yes (Death, Hospitalization, Other)
  Sender: FDA-Public Use
  Company Number: US-CELGENEUS-163-21880-11040983

PATIENT
  Sex: Male

DRUGS (8)
  1. LEVOTHYROXINE SODIUM [Concomitant]
     Dosage: .15 MILLIGRAM
     Route: 065
  2. LACTULOSE [Concomitant]
     Dosage: 30 MILLILITER
     Route: 065
  3. VITAMIN B-12 [Concomitant]
     Indication: VITAMIN B12 DEFICIENCY
     Route: 050
  4. ROCEPHIN [Concomitant]
     Dosage: 2 GRAM
     Route: 041
  5. RED BLOOD CELLS [Concomitant]
     Route: 041
  6. PREDNISONE TAB [Concomitant]
     Route: 065
     Dates: end: 20110412
  7. ZOMETA [Concomitant]
     Route: 065
  8. REVLIMID [Suspect]
     Indication: MULTIPLE MYELOMA
     Dosage: 10 MILLIGRAM
     Route: 048
     Dates: start: 20101025, end: 20110404

REACTIONS (4)
  - STREPTOCOCCAL BACTERAEMIA [None]
  - DRUG INEFFECTIVE [None]
  - GASTROINTESTINAL HAEMORRHAGE [None]
  - MULTI-ORGAN FAILURE [None]
